FAERS Safety Report 21854404 (Version 1)
Quarter: 2023Q1

REPORT INFORMATION
  Report Type: Spontaneous
  Country: ES (occurrence: ES)
  Receive Date: 20230112
  Receipt Date: 20230112
  Transmission Date: 20230418
  Serious: Yes (Other)
  Sender: FDA-Public Use
  Company Number: ES-RUBIO-202200156

PATIENT
  Age: 15 Year
  Sex: Male

DRUGS (3)
  1. ATOMOXETINE HYDROCHLORIDE [Interacting]
     Active Substance: ATOMOXETINE HYDROCHLORIDE
     Indication: Attention deficit hyperactivity disorder
     Dosage: 40 MG, DAILY
     Route: 048
  2. PSEUDOEPHEDRINE [Interacting]
     Active Substance: PSEUDOEPHEDRINE
     Indication: Nasal congestion
     Dosage: UNK UNK, UNKNOWN
     Route: 065
  3. FLUTICASONE [Concomitant]
     Active Substance: FLUTICASONE
     Indication: Nasal congestion
     Dosage: UP TO 10 BEATS/ DAY

REACTIONS (5)
  - Hypertensive crisis [Unknown]
  - Rhinitis allergic [Unknown]
  - Drug interaction [Unknown]
  - Tremor [Unknown]
  - Anxiety [Unknown]
